FAERS Safety Report 4843705-0 (Version None)
Quarter: 2005Q4

REPORT INFORMATION
  Report Type: 
  Country: None (occurrence: None)
  Receive Date: 20051202
  Receipt Date: 20051123
  Transmission Date: 20060501
  Serious: Yes (Hospitalization)
  Sender: FDA-Public Use
  Company Number: PHRM2005FR03082

PATIENT
  Age: 62 Year
  Sex: Female

DRUGS (12)
  1. SINTROM 4 [Suspect]
     Dosage: 2 MG/DAY
     Route: 048
     Dates: start: 20050818, end: 20050824
  2. LOPRESSOR [Suspect]
     Dosage: 200 MG/DAY
     Route: 048
  3. PREVISCAN [Suspect]
     Route: 048
     Dates: start: 20050801, end: 20050824
  4. CAPTOPRIL [Suspect]
     Dosage: 75 MG/DAY
     Route: 048
  5. LASILIX [Suspect]
     Dosage: 4 MG/DAY
     Route: 048
  6. DELURSAN [Suspect]
     Dosage: 1250 MG/DAY
     Route: 048
  7. NPH INSULIN [Concomitant]
     Dosage: 20 U MORNING/14 U EVENING
  8. LANTUS [Concomitant]
  9. ACTRAPID INSULIN NOVO [Concomitant]
     Dosage: 4 U MORNING/4 U EVENING
  10. DIFRAREL [Concomitant]
     Dosage: 3 DF/DAY
  11. CACIT D3 [Concomitant]
     Dosage: 1 DF/DAY
  12. DUPHALAC [Concomitant]
     Dosage: 2 TO 4 BAGS/DAY

REACTIONS (8)
  - ALANINE AMINOTRANSFERASE INCREASED [None]
  - AMMONIA INCREASED [None]
  - ASPARTATE AMINOTRANSFERASE INCREASED [None]
  - BLOOD ALBUMIN DECREASED [None]
  - BLOOD LACTATE DEHYDROGENASE INCREASED [None]
  - CUTANEOUS VASCULITIS [None]
  - GAMMA-GLUTAMYLTRANSFERASE INCREASED [None]
  - HEPATIC ENCEPHALOPATHY [None]
